FAERS Safety Report 5275112-3 (Version None)
Quarter: 2007Q1

REPORT INFORMATION
  Report Type: 
  Country: None (occurrence: None)
  Receive Date: 20061213
  Receipt Date: 20060222
  Transmission Date: 20070707
  Serious: Yes (Hospitalization)
  Sender: FDA-Public Use
  Company Number: 2006UW03060

PATIENT
  Age: 22 Year
  Sex: Male
  Weight: 55.338 kg

DRUGS (2)
  1. SEROQUEL [Suspect]
     Indication: SCHIZOPHRENIA
     Dosage: 100 MG ONCE PO
     Route: 048
  2. ZYPREXA [Concomitant]

REACTIONS (2)
  - AGGRESSION [None]
  - DELUSIONAL DISORDER, UNSPECIFIED TYPE [None]
